FAERS Safety Report 13176038 (Version 1)
Quarter: 2017Q1

REPORT INFORMATION
  Report Type: Spontaneous
  Country: US (occurrence: US)
  Receive Date: 20170201
  Receipt Date: 20170201
  Transmission Date: 20170428
  Serious: No
  Sender: FDA-Public Use
  Company Number: US-PERRIGO-16US013874

PATIENT
  Age: 36 Year
  Sex: Male
  Weight: 58.96 kg

DRUGS (1)
  1. IBUPROFEN. [Suspect]
     Active Substance: IBUPROFEN
     Indication: PAIN
     Dosage: 400 MG, AT LEAST ONCE DAILY PRN
     Route: 048
     Dates: start: 201602

REACTIONS (2)
  - Abdominal discomfort [Recovering/Resolving]
  - Incorrect drug administration duration [Not Recovered/Not Resolved]

NARRATIVE: CASE EVENT DATE: 201602
